FAERS Safety Report 6652329-4 (Version None)
Quarter: 2010Q1

REPORT INFORMATION
  Report Type: 
  Country: None (occurrence: None)
  Receive Date: 20100325
  Receipt Date: 20100203
  Transmission Date: 20100710
  Serious: Yes (Other)
  Sender: FDA-Public Use
  Company Number: PHHY2010TW17375

PATIENT

DRUGS (1)
  1. GLEEVEC [Suspect]
     Dosage: UNK

REACTIONS (3)
  - LIPOMA EXCISION [None]
  - LIPOMA OF BREAST [None]
  - TUMOUR PAIN [None]
